FAERS Safety Report 10551784 (Version 2)
Quarter: 2014Q4

REPORT INFORMATION
  Report Type: Spontaneous
  Country: US (occurrence: None)
  Receive Date: 20141027
  Receipt Date: 20141107
  Transmission Date: 20150529
  Serious: Yes (Hospitalization, Other)
  Sender: FDA-Public Use
  Company Number: ADR-2014-01967

PATIENT
  Age: 25 Year
  Sex: Male

DRUGS (1)
  1. LIORESAL [Suspect]
     Active Substance: BACLOFEN
     Indication: MUSCLE SPASTICITY
     Dosage: 1500 MCG/ML

REACTIONS (9)
  - Tachycardia [None]
  - Muscle spasticity [None]
  - Device kink [None]
  - Pyrexia [None]
  - Pneumonia [None]
  - Hypertonia [None]
  - Blood lactic acid increased [None]
  - Implant site extravasation [None]
  - Hypertension [None]

NARRATIVE: CASE EVENT DATE: 20141015
